FAERS Safety Report 23896469 (Version 3)
Quarter: 2025Q1

REPORT INFORMATION
  Report Type: Spontaneous
  Country: CA (occurrence: CA)
  Receive Date: 20240524
  Receipt Date: 20250210
  Transmission Date: 20250408
  Serious: Yes (Other)
  Sender: SANDOZ
  Company Number: CA-SANDOZ-SDZ2024CA051709

PATIENT
  Age: 14 Year
  Sex: Male

DRUGS (6)
  1. SOMATROPIN [Suspect]
     Active Substance: SOMATROPIN
     Dosage: 1 MG, QD
     Route: 065
  2. SOMATROPIN [Suspect]
     Active Substance: SOMATROPIN
     Route: 065
  3. SOMATROPIN [Suspect]
     Active Substance: SOMATROPIN
     Route: 058
  4. SOMATROPIN [Suspect]
     Active Substance: SOMATROPIN
     Indication: Growth hormone deficiency
     Route: 058
  5. SOMATROPIN [Suspect]
     Active Substance: SOMATROPIN
     Dosage: 1 DF, QD
     Route: 065
  6. SOMATROPIN [Suspect]
     Active Substance: SOMATROPIN
     Route: 058

REACTIONS (4)
  - Brain neoplasm malignant [Recovering/Resolving]
  - Second primary malignancy [Recovering/Resolving]
  - Recurrent cancer [Recovering/Resolving]
  - Product prescribing error [Recovering/Resolving]
